FAERS Safety Report 7229445-1 (Version None)
Quarter: 2011Q1

REPORT INFORMATION
  Report Type: 
  Country: None (occurrence: None)
  Receive Date: 20110117
  Receipt Date: 20110110
  Transmission Date: 20110831
  Serious: Yes (Other)
  Sender: FDA-Public Use
  Company Number: B0693685A

PATIENT
  Age: 57 Year
  Sex: Female
  Weight: 90 kg

DRUGS (2)
  1. ZINNAT [Suspect]
     Dosage: 500MG PER DAY
     Dates: start: 20110102, end: 20110111
  2. AMOXICILLIN AND CLAVULANATE POTASSIUM [Concomitant]
     Route: 065
     Dates: start: 20101230

REACTIONS (5)
  - DRUG INEFFECTIVE [None]
  - ASTHENIA [None]
  - PRODUCT QUALITY ISSUE [None]
  - PNEUMONIA [None]
  - PYREXIA [None]
